FAERS Safety Report 12286440 (Version 4)
Quarter: 2017Q2

REPORT INFORMATION
  Report Type: Spontaneous
  Country: US (occurrence: US)
  Receive Date: 20160420
  Receipt Date: 20170427
  Transmission Date: 20170830
  Serious: No
  Sender: FDA-Public Use
  Company Number: PHEH2016US009343

PATIENT
  Sex: Female

DRUGS (6)
  1. VIVELLE-DOT [Suspect]
     Active Substance: ESTRADIOL
     Dosage: 4 DF, QOD
     Route: 062
  2. VIVELLE-DOT [Suspect]
     Active Substance: ESTRADIOL
     Indication: PRODUCT USED FOR UNKNOWN INDICATION
     Dosage: 0.1 MG, QD
     Route: 062
  3. VIVELLE-DOT [Suspect]
     Active Substance: ESTRADIOL
     Dosage: 0.1 MG, QOD
     Route: 062
  4. VIVELLE-DOT [Suspect]
     Active Substance: ESTRADIOL
     Dosage: 2 DF, QOD
     Route: 062
  5. VIVELLE-DOT [Suspect]
     Active Substance: ESTRADIOL
     Dosage: 2 DF, QOD
     Route: 062
  6. VIVELLE-DOT [Suspect]
     Active Substance: ESTRADIOL
     Dosage: 3 DF, QOD
     Route: 062

REACTIONS (3)
  - Maternal exposure during pregnancy [Unknown]
  - Product quality issue [Unknown]
  - Product adhesion issue [Unknown]
